FAERS Safety Report 5066483-1 (Version None)
Quarter: 2006Q3

REPORT INFORMATION
  Report Type: 
  Country: None (occurrence: None)
  Receive Date: 20060731
  Receipt Date: 20060731
  Transmission Date: 20061208
  Serious: Yes (Hospitalization)
  Sender: FDA-Public Use
  Company Number: None

PATIENT
  Age: 25 Year
  Sex: Female
  Weight: 35.8342 kg

DRUGS (1)
  1. BACTRIM [Suspect]
     Indication: URINARY TRACT INFECTION
     Dosage: PO
     Route: 048
     Dates: start: 20060726, end: 20060727

REACTIONS (4)
  - CHILLS [None]
  - HEPATOTOXICITY [None]
  - LIVER FUNCTION TEST ABNORMAL [None]
  - PYREXIA [None]
